FAERS Safety Report 24357066 (Version 1)
Quarter: 2024Q3

REPORT INFORMATION
  Report Type: Spontaneous
  Country: US (occurrence: None)
  Receive Date: 20240923
  Receipt Date: 20240923
  Transmission Date: 20241017
  Serious: No
  Sender: Public
  Company Number: None

PATIENT
  Age: 60 Year
  Sex: Female

DRUGS (1)
  1. OLUMIANT [Suspect]
     Active Substance: BARICITINIB
     Indication: Alopecia areata
     Dosage: TAKE 1 TABLET BY MOUTH DAILY AS DIRECTED
     Route: 048
     Dates: start: 202403

REACTIONS (1)
  - Gastrointestinal bacterial infection [None]
